FAERS Safety Report 10940420 (Version 2)
Quarter: 2015Q2

REPORT INFORMATION
  Report Type: Spontaneous
  Country: US (occurrence: US)
  Receive Date: 20150322
  Receipt Date: 20150524
  Transmission Date: 20150821
  Serious: Yes (Other)
  Sender: FDA-Public Use
  Company Number: US-JNJFOC-20140101474

PATIENT
  Age: 61 Year
  Sex: Male

DRUGS (2)
  1. ASPIRIN. [Concomitant]
     Active Substance: ASPIRIN
     Route: 065
  2. REOPRO [Suspect]
     Active Substance: ABCIXIMAB
     Indication: STENT PLACEMENT
     Route: 041
     Dates: start: 201312, end: 20140103

REACTIONS (2)
  - Haemoglobin decreased [Unknown]
  - Gastrointestinal haemorrhage [Not Recovered/Not Resolved]

NARRATIVE: CASE EVENT DATE: 20140101
